FAERS Safety Report 7129644-3 (Version None)
Quarter: 2010Q4

REPORT INFORMATION
  Report Type: 
  Country: None (occurrence: None)
  Receive Date: 20101130
  Receipt Date: 20101118
  Transmission Date: 20110411
  Serious: Yes (Other)
  Sender: FDA-Public Use
  Company Number: PHHY2010US78853

PATIENT
  Sex: Female
  Weight: 65.76 kg

DRUGS (1)
  1. EXJADE [Suspect]
     Indication: SICKLE CELL ANAEMIA
     Dosage: 1250MG DAILY
     Route: 048
     Dates: start: 20090506

REACTIONS (1)
  - SURGERY [None]
